FAERS Safety Report 24720943 (Version 1)
Quarter: 2024Q4

REPORT INFORMATION
  Report Type: Spontaneous
  Country: CN (occurrence: CN)
  Receive Date: 20241211
  Receipt Date: 20241211
  Transmission Date: 20250114
  Serious: Yes (Hospitalization)
  Sender: BAXTER
  Company Number: None

PATIENT
  Age: 66 Year
  Sex: Male
  Weight: 89 kg

DRUGS (14)
  1. CYCLOPHOSPHAMIDE [Suspect]
     Active Substance: CYCLOPHOSPHAMIDE
     Indication: Non-Hodgkin^s lymphoma
     Dosage: 1.200000 G ONE TIME IN ONE DAY
     Route: 041
     Dates: start: 20241112, end: 20241112
  2. CYCLOPHOSPHAMIDE [Suspect]
     Active Substance: CYCLOPHOSPHAMIDE
     Indication: Diffuse large B-cell lymphoma
  3. SODIUM CHLORIDE [Suspect]
     Active Substance: SODIUM CHLORIDE
     Indication: Medication dilution
     Dosage: 0.9% SODIUM CHLORIDE INJECTION 700 ML ONE TIME IN ONE DAY
     Route: 041
     Dates: start: 20241112, end: 20241112
  4. SODIUM CHLORIDE [Suspect]
     Active Substance: SODIUM CHLORIDE
     Dosage: .9% SODIUM CHLORIDE INJECTION 500 ML ONE TIME IN ONE DAY
     Route: 041
     Dates: start: 20241112, end: 20241112
  5. SODIUM CHLORIDE [Suspect]
     Active Substance: SODIUM CHLORIDE
     Dosage: 5% GLUCOSE INJECTION 350 ML ONE TIME IN ONE DAY
     Route: 041
     Dates: start: 20241112, end: 20241112
  6. SODIUM CHLORIDE [Suspect]
     Active Substance: SODIUM CHLORIDE
     Dosage: 5% GLUCOSE INJECTION 100 ML
     Route: 041
     Dates: start: 20241113, end: 20241117
  7. ZUBERITAMAB [Suspect]
     Active Substance: ZUBERITAMAB
     Indication: Diffuse large B-cell lymphoma
     Dosage: 700.000000 MG, ONE TIME IN ONE DAY
     Route: 041
     Dates: start: 20241112, end: 20241112
  8. ZUBERITAMAB [Suspect]
     Active Substance: ZUBERITAMAB
     Indication: Non-Hodgkin^s lymphoma
  9. DOXORUBICIN HYDROCHLORIDE [Suspect]
     Active Substance: DOXORUBICIN HYDROCHLORIDE
     Indication: Non-Hodgkin^s lymphoma
     Dosage: 60.000000 MG, ONE TIME IN ONE DAY
     Route: 041
     Dates: start: 20241112, end: 20241112
  10. DOXORUBICIN HYDROCHLORIDE [Suspect]
     Active Substance: DOXORUBICIN HYDROCHLORIDE
     Indication: Diffuse large B-cell lymphoma
  11. DEXAMETHASONE SODIUM PHOSPHATE [Concomitant]
     Active Substance: DEXAMETHASONE SODIUM PHOSPHATE
     Indication: Diffuse large B-cell lymphoma
     Dosage: 15.000000 MG, ONE TIME IN ONE DAY
     Route: 041
     Dates: start: 20241113, end: 20241117
  12. DEXAMETHASONE SODIUM PHOSPHATE [Concomitant]
     Active Substance: DEXAMETHASONE SODIUM PHOSPHATE
     Indication: Non-Hodgkin^s lymphoma
  13. VINCRISTINE SULFATE [Concomitant]
     Active Substance: VINCRISTINE SULFATE
     Indication: Non-Hodgkin^s lymphoma
     Dosage: 1.000000 MG, ONE TIME IN ONE DAY
     Route: 042
     Dates: start: 20241112, end: 20241113
  14. VINCRISTINE SULFATE [Concomitant]
     Active Substance: VINCRISTINE SULFATE
     Indication: Diffuse large B-cell lymphoma

REACTIONS (1)
  - Neutrophil count decreased [Recovering/Resolving]

NARRATIVE: CASE EVENT DATE: 20241126
